FAERS Safety Report 15249598 (Version 1)
Quarter: 2018Q3

REPORT INFORMATION
  Report Type: Spontaneous
  Country: US (occurrence: US)
  Receive Date: 20180807
  Receipt Date: 20180807
  Transmission Date: 20181010
  Serious: No
  Sender: FDA-Public Use
  Company Number: US-PERRIGO-18US006003

PATIENT
  Age: 69 Year
  Sex: Female
  Weight: 65.76 kg

DRUGS (4)
  1. FISH OIL [Concomitant]
     Active Substance: FISH OIL
     Indication: ROUTINE HEALTH MAINTENANCE
     Dosage: UNK
     Route: 048
  2. LORATADINE. [Suspect]
     Active Substance: LORATADINE
     Indication: COUGH
     Dosage: 10 MG, QD
     Route: 048
     Dates: start: 20180601
  3. LORATADINE. [Suspect]
     Active Substance: LORATADINE
     Indication: SNEEZING
     Dosage: 10 MG, TWICE IN 12 HOURS
     Route: 048
     Dates: start: 20180604, end: 20180605
  4. LORATADINE. [Suspect]
     Active Substance: LORATADINE
     Indication: SEASONAL ALLERGY

REACTIONS (2)
  - Off label use [Unknown]
  - Inappropriate schedule of drug administration [Recovered/Resolved]

NARRATIVE: CASE EVENT DATE: 20180601
